FAERS Safety Report 4605983-2 (Version None)
Quarter: 2005Q1

REPORT INFORMATION
  Report Type: 
  Country: None (occurrence: None)
  Receive Date: 20050311
  Receipt Date: 20050302
  Transmission Date: 20050727
  Serious: Yes (Life-Threatening)
  Sender: FDA-Public Use
  Company Number: ZA-GLAXOSMITHKLINE-B0374190A

PATIENT
  Age: 38 Year
  Sex: Male
  Weight: 58 kg

DRUGS (3)
  1. COMBIVIR [Suspect]
     Indication: SYSTEMIC ANTIVIRAL TREATMENT
     Dosage: 300MG TWICE PER DAY
     Route: 048
     Dates: start: 20040105, end: 20040226
  2. EFAVIRENZ [Concomitant]
     Indication: ILL-DEFINED DISORDER
     Dosage: 600MG PER DAY
     Route: 048
     Dates: start: 20040105
  3. DAPSONE [Concomitant]
     Indication: ILL-DEFINED DISORDER
     Dosage: 100MG PER DAY
     Route: 048

REACTIONS (7)
  - HAEMOGLOBIN DECREASED [None]
  - HAEMOGLOBINAEMIA [None]
  - OEDEMA PERIPHERAL [None]
  - PAIN IN EXTREMITY [None]
  - PALPITATIONS [None]
  - PLATELET COUNT INCREASED [None]
  - WHITE BLOOD CELL COUNT DECREASED [None]
